FAERS Safety Report 22313013 (Version 1)
Quarter: 2023Q2

REPORT INFORMATION
  Report Type: Other
  Country: GB (occurrence: GB)
  Receive Date: 20230512
  Receipt Date: 20230512
  Transmission Date: 20230722
  Serious: Yes (Other)
  Sender: FDA-Public Use
  Company Number: GB-MHRA-MED-202304230707273740-WPVQT

PATIENT

DRUGS (5)
  1. MONTELUKAST SODIUM [Suspect]
     Active Substance: MONTELUKAST SODIUM
     Indication: Chronic spontaneous urticaria
     Dosage: 10 MILLIGRAM, HS
     Route: 048
     Dates: start: 20230411
  2. BUPRENORPHINE [Concomitant]
     Active Substance: BUPRENORPHINE
     Indication: Drug dependence
     Dosage: UNK
     Route: 065
     Dates: start: 2015
  3. FEXOFENADINE [Concomitant]
     Active Substance: FEXOFENADINE HYDROCHLORIDE
     Indication: Chronic spontaneous urticaria
     Dosage: UNK
     Route: 065
     Dates: start: 20230318
  4. NEOCLARITYN [Concomitant]
     Active Substance: DESLORATADINE
     Indication: Chronic spontaneous urticaria
     Dosage: UNK
     Route: 065
     Dates: start: 20230318
  5. ESTRADIOL HEMIHYDRATE\NORETHINDRONE ACETATE [Concomitant]
     Active Substance: ESTRADIOL HEMIHYDRATE\NORETHINDRONE ACETATE
     Indication: Menopause
     Dosage: UNK
     Route: 065
     Dates: start: 2017

REACTIONS (2)
  - Wheezing [Not Recovered/Not Resolved]
  - Dyspnoea [Unknown]

NARRATIVE: CASE EVENT DATE: 20230418
